FAERS Safety Report 23427788 (Version 2)
Quarter: 2024Q1

REPORT INFORMATION
  Report Type: Spontaneous
  Country: US (occurrence: US)
  Receive Date: 20240122
  Receipt Date: 20240319
  Transmission Date: 20240410
  Serious: Yes (Other)
  Sender: FDA-Public Use
  Company Number: US-REGENERON PHARMACEUTICALS, INC.-2024-017451

PATIENT
  Sex: Female

DRUGS (1)
  1. EYLEA [Suspect]
     Active Substance: AFLIBERCEPT
     Indication: Product used for unknown indication
     Dosage: UNK, DIRECTLY INTO THE EYE (FORMULATION: UNKNOWN)
     Route: 031

REACTIONS (3)
  - Blindness transient [Recovering/Resolving]
  - Visual field defect [Unknown]
  - Vision blurred [Recovering/Resolving]
